FAERS Safety Report 10166072 (Version 1)
Quarter: 2014Q2

REPORT INFORMATION
  Report Type: Spontaneous
  Country: FR (occurrence: FR)
  Receive Date: 20140512
  Receipt Date: 20140512
  Transmission Date: 20141212
  Serious: Yes (Hospitalization, Other)
  Sender: FDA-Public Use
  Company Number: FR-PFIZER INC-2014123391

PATIENT
  Age: 53 Year
  Sex: Female

DRUGS (4)
  1. SALAZOPYRINE [Suspect]
     Dosage: 1 G, 2X/DAY
     Route: 048
     Dates: start: 20140303, end: 20140311
  2. ARCOXIA [Suspect]
     Dosage: UNK
     Route: 048
     Dates: start: 201402, end: 20140311
  3. VIREAD [Concomitant]
     Indication: HEPATITIS B
     Dosage: UNK
     Dates: start: 20140224
  4. CORTANCYL [Concomitant]
     Dosage: 5 MG, DAILY
     Dates: start: 20140303

REACTIONS (2)
  - Acute febrile neutrophilic dermatosis [Recovered/Resolved]
  - Abdominal pain [Recovered/Resolved]
